FAERS Safety Report 25015403 (Version 1)
Quarter: 2025Q1

REPORT INFORMATION
  Report Type: Spontaneous
  Country: ES (occurrence: None)
  Receive Date: 20250227
  Receipt Date: 20250227
  Transmission Date: 20250408
  Serious: Yes (Hospitalization)
  Sender: UMEDICA LABS
  Company Number: ES-Umedica-000635

PATIENT
  Age: 89 Year
  Sex: Male

DRUGS (14)
  1. ROSUVASTATIN CALCIUM [Suspect]
     Active Substance: ROSUVASTATIN CALCIUM
     Indication: Product used for unknown indication
  2. ABIRATERONE [Suspect]
     Active Substance: ABIRATERONE
     Indication: Prostatic disorder
     Route: 048
  3. DENOSUMAB [Concomitant]
     Active Substance: DENOSUMAB
  4. PREDNISONE [Concomitant]
     Active Substance: PREDNISONE
  5. CALCIFEDIOL [Concomitant]
     Active Substance: CALCIFEDIOL
  6. CALCIUM CARBONATE [Concomitant]
     Active Substance: CALCIUM CARBONATE
  7. BISOPROLOL [Concomitant]
     Active Substance: BISOPROLOL
  8. CETIRIZINE [Concomitant]
     Active Substance: CETIRIZINE HYDROCHLORIDE
  9. LEVOTHYROXINE [Concomitant]
     Active Substance: LEVOTHYROXINE
  10. CANDESARTAN [Concomitant]
     Active Substance: CANDESARTAN
  11. HYDROCHLOROTHIAZIDE [Concomitant]
     Active Substance: HYDROCHLOROTHIAZIDE
  12. ASPIRIN [Concomitant]
     Active Substance: ASPIRIN
  13. TRIPTORELIN [Concomitant]
     Active Substance: TRIPTORELIN
  14. OMEPRAZOLE [Concomitant]
     Active Substance: OMEPRAZOLE

REACTIONS (4)
  - Acute kidney injury [Recovered/Resolved with Sequelae]
  - Cardiac failure congestive [Recovered/Resolved with Sequelae]
  - Rhabdomyolysis [Recovered/Resolved]
  - Drug interaction [Unknown]
